FAERS Safety Report 21255301 (Version 1)
Quarter: 2022Q3

REPORT INFORMATION
  Report Type: Spontaneous
  Country: RU (occurrence: RU)
  Receive Date: 20220825
  Receipt Date: 20220825
  Transmission Date: 20221026
  Serious: Yes (Other)
  Sender: FDA-Public Use
  Company Number: RU-TAKEDA-2022TUS058682

PATIENT
  Age: 33 Year
  Sex: Female
  Weight: 76 kg

DRUGS (1)
  1. ENTYVIO [Suspect]
     Active Substance: VEDOLIZUMAB
     Indication: Crohn^s disease
     Dosage: 300 MILLIGRAM, MONTHLY
     Route: 042
     Dates: start: 20220316, end: 20220405

REACTIONS (1)
  - Loss of therapeutic response [Unknown]
